FAERS Safety Report 7294731-6 (Version None)
Quarter: 2011Q1

REPORT INFORMATION
  Report Type: 
  Country: None (occurrence: None)
  Receive Date: 20110216
  Receipt Date: 20110209
  Transmission Date: 20110831
  Serious: Yes (Other)
  Sender: FDA-Public Use
  Company Number: US-PFIZER INC-2011029680

PATIENT
  Sex: Female
  Weight: 65.76 kg

DRUGS (10)
  1. GLUCOSAMINE [Concomitant]
     Indication: ARTHRITIS
     Dosage: 200 MG, 2X/DAY
  2. CALCIUM WITH VITAMIN D [Concomitant]
     Dosage: UNK
  3. METOPROLOL [Concomitant]
     Indication: HYPERTENSION
     Dosage: 150 MG, 4X/DAY
  4. AMLODIPINE [Concomitant]
     Indication: HYPERTENSION
     Dosage: 10 MG, 1X/DAY
  5. LIPITOR [Concomitant]
     Indication: BLOOD CHOLESTEROL INCREASED
     Dosage: 5 MG, 1X/DAY
  6. LISINOPRIL [Concomitant]
     Indication: HYPERTENSION
     Dosage: 40 MG, 1X/DAY
  7. HYDROCHLOROTHIAZIDE [Concomitant]
     Indication: HYPERTENSION
     Dosage: 12.5 MG, 1X/DAY
  8. PRILOSEC [Concomitant]
     Indication: GASTROOESOPHAGEAL REFLUX DISEASE
     Dosage: 20 MG, 1X/DAY
  9. FISH OIL [Concomitant]
     Dosage: UNK
  10. XALATAN [Suspect]
     Indication: GLAUCOMA
     Dosage: 1 GTT, IN EACH EYE
     Route: 047
     Dates: start: 20110208

REACTIONS (3)
  - SENSITIVITY OF TEETH [None]
  - HYPOAESTHESIA ORAL [None]
  - PARAESTHESIA ORAL [None]
